FAERS Safety Report 5524352-4 (Version None)
Quarter: 2007Q4

REPORT INFORMATION
  Report Type: 
  Country: None (occurrence: None)
  Receive Date: 20071121
  Receipt Date: 20071113
  Transmission Date: 20080405
  Serious: Yes (Other)
  Sender: FDA-Public Use
  Company Number: JP-PFIZER INC-2007096049

PATIENT
  Sex: Female

DRUGS (3)
  1. SALAZOPYRIN [Suspect]
  2. ALL OTHER THERAPEUTIC PRODUCTS [Concomitant]
  3. DEPAKENE [Concomitant]

REACTIONS (1)
  - HYPERKALAEMIA [None]
